FAERS Safety Report 4474645-7 (Version None)
Quarter: 2004Q4

REPORT INFORMATION
  Report Type: 
  Country: None (occurrence: None)
  Receive Date: 20041012
  Receipt Date: 20040930
  Transmission Date: 20050328
  Serious: Yes (Hospitalization)
  Sender: FDA-Public Use
  Company Number: 2004236374HK

PATIENT
  Age: 62 Year
  Sex: Female
  Weight: 75.4 kg

DRUGS (3)
  1. PHARMORUBICIN(EPIRUBICIN HYDROCHLORIDE) POWDER, STERILE [Suspect]
     Indication: BREAST CANCER
     Dosage: CYCLIC, IV
     Route: 042
     Dates: start: 20040822
  2. FLUOROURACIL [Suspect]
     Indication: BREAST CANCER
     Dosage: CYCLIC, IV
     Route: 042
     Dates: start: 20040922
  3. CYCLOPHOSPHAMIDE (CYLCOPHOSMAIDE) [Suspect]
     Indication: BREAST CANCER
     Dosage: CYCLIC, IV
     Route: 042
     Dates: start: 20040922

REACTIONS (7)
  - BACK PAIN [None]
  - EYE DISCHARGE [None]
  - HYPERHIDROSIS [None]
  - HYPOKALAEMIA [None]
  - NASAL CONGESTION [None]
  - PHARYNGOLARYNGEAL PAIN [None]
  - VOMITING [None]
